FAERS Safety Report 21767599 (Version 1)
Quarter: 2022Q4

REPORT INFORMATION
  Report Type: Spontaneous
  Country: US (occurrence: US)
  Receive Date: 20221222
  Receipt Date: 20221222
  Transmission Date: 20230112
  Serious: Yes (Hospitalization)
  Sender: FDA-Public Use
  Company Number: US-ELI_LILLY_AND_COMPANY-US202212007818

PATIENT
  Age: 64 Year
  Sex: Male

DRUGS (2)
  1. RAMUCIRUMAB [Suspect]
     Active Substance: RAMUCIRUMAB
     Indication: Product used for unknown indication
     Dosage: 8 MG/KG, UNKNOWN
     Route: 042
     Dates: start: 20221005
  2. PACLITAXEL [Suspect]
     Active Substance: PACLITAXEL
     Indication: Product used for unknown indication
     Dosage: 60 MG/M2, UNKNOWN
     Route: 042
     Dates: start: 20221005

REACTIONS (21)
  - Biliary dilatation [Unknown]
  - Pleural effusion [Unknown]
  - Ascites [Unknown]
  - Gastrointestinal wall thickening [Unknown]
  - Cholelithiasis [Unknown]
  - Atelectasis [Unknown]
  - Lung opacity [Unknown]
  - Pneumonia [Unknown]
  - Fatigue [Unknown]
  - Mobility decreased [Unknown]
  - Fall [Unknown]
  - Balance disorder [Unknown]
  - Anal incontinence [Unknown]
  - Gastrooesophageal reflux disease [Unknown]
  - Hiccups [Unknown]
  - Abdominal distension [Unknown]
  - Odynophagia [Unknown]
  - Oral pain [Unknown]
  - Decreased appetite [Unknown]
  - Asthenia [Unknown]
  - Diarrhoea [Recovered/Resolved]

NARRATIVE: CASE EVENT DATE: 20221101
